FAERS Safety Report 24616923 (Version 1)
Quarter: 2024Q4

REPORT INFORMATION
  Report Type: Spontaneous
  Country: US (occurrence: US)
  Receive Date: 20241114
  Receipt Date: 20241114
  Transmission Date: 20250115
  Serious: Yes (Other)
  Sender: AMGEN
  Company Number: US-AMGEN-USASP2024221396

PATIENT

DRUGS (2)
  1. PREDNISONE [Suspect]
     Active Substance: PREDNISONE
     Indication: Pneumonitis
     Dosage: UNK
     Route: 065
  2. INFLIXIMAB [Suspect]
     Active Substance: INFLIXIMAB
     Indication: Immunosuppressant drug therapy
     Dosage: UNK
     Route: 065

REACTIONS (3)
  - Pneumonitis [Unknown]
  - Drug resistance [Unknown]
  - Off label use [Unknown]
